FAERS Safety Report 17207019 (Version 1)
Quarter: 2019Q4

REPORT INFORMATION
  Report Type: Spontaneous
  Country: SE (occurrence: SE)
  Receive Date: 20191227
  Receipt Date: 20191227
  Transmission Date: 20200122
  Serious: Yes (Hospitalization)
  Sender: FDA-Public Use
  Company Number: SE-MYLANLABS-2019M1129533

PATIENT
  Sex: Male

DRUGS (1)
  1. LERGIGAN (PROMETHAZINE) [Suspect]
     Active Substance: PROMETHAZINE HYDROCHLORIDE
     Indication: PRODUCT USED FOR UNKNOWN INDICATION
     Dosage: 25 MILLIGRAM
     Route: 048
     Dates: start: 201811, end: 201811

REACTIONS (6)
  - Sinus tachycardia [Unknown]
  - Akathisia [Unknown]
  - Intentional overdose [Unknown]
  - Hypotonia [Unknown]
  - Intentional self-injury [Unknown]
  - Disorientation [Unknown]

NARRATIVE: CASE EVENT DATE: 201811
